FAERS Safety Report 7029782-X (Version None)
Quarter: 2010Q4

REPORT INFORMATION
  Report Type: 
  Country: None (occurrence: None)
  Receive Date: 20101001
  Receipt Date: 20100922
  Transmission Date: 20110411
  Serious: Yes (Hospitalization)
  Sender: FDA-Public Use
  Company Number: 2010JP003774

PATIENT
  Age: 37 Year
  Sex: Female
  Weight: 48.1 kg

DRUGS (43)
  1. TACROLIMUS [Suspect]
     Dosage: SEE IMAGE  ORAL
     Route: 048
     Dates: start: 20070614, end: 20070614
  2. TACROLIMUS [Suspect]
     Dosage: SEE IMAGE  ORAL
     Route: 048
     Dates: start: 20070627, end: 20070627
  3. TACROLIMUS [Suspect]
     Dosage: SEE IMAGE  ORAL
     Route: 048
     Dates: start: 20070628, end: 20070628
  4. TACROLIMUS [Suspect]
     Dosage: SEE IMAGE  ORAL
     Route: 048
     Dates: start: 20070629, end: 20070629
  5. TACROLIMUS [Suspect]
     Dosage: SEE IMAGE  ORAL
     Route: 048
     Dates: start: 20070630, end: 20070630
  6. TACROLIMUS [Suspect]
     Dosage: SEE IMAGE  ORAL
     Route: 048
     Dates: start: 20070701, end: 20070701
  7. TACROLIMUS [Suspect]
     Dosage: SEE IMAGE  ORAL
     Route: 048
     Dates: start: 20070702, end: 20070702
  8. TACROLIMUS [Suspect]
     Dosage: SEE IMAGE  ORAL
     Route: 048
     Dates: start: 20070703, end: 20070703
  9. TACROLIMUS [Suspect]
     Dosage: SEE IMAGE  ORAL
     Route: 048
     Dates: start: 20070704, end: 20070705
  10. TACROLIMUS [Suspect]
     Dosage: SEE IMAGE  ORAL
     Route: 048
     Dates: start: 20070706, end: 20070706
  11. TACROLIMUS [Suspect]
     Dosage: SEE IMAGE  ORAL
     Route: 048
     Dates: start: 20070707, end: 20070709
  12. TACROLIMUS [Suspect]
     Dosage: SEE IMAGE  ORAL
     Route: 048
     Dates: start: 20070710, end: 20070710
  13. TACROLIMUS [Suspect]
     Dosage: SEE IMAGE  ORAL
     Route: 048
     Dates: start: 20070711, end: 20070712
  14. TACROLIMUS [Suspect]
     Dosage: SEE IMAGE  ORAL
     Route: 048
     Dates: start: 20070713, end: 20070715
  15. TACROLIMUS [Suspect]
     Dosage: SEE IMAGE  ORAL
     Route: 048
     Dates: start: 20070716, end: 20070716
  16. TACROLIMUS [Suspect]
     Dosage: SEE IMAGE  ORAL
     Route: 048
     Dates: start: 20070717, end: 20070717
  17. TACROLIMUS [Suspect]
     Dosage: SEE IMAGE  ORAL
     Route: 048
     Dates: start: 20070718, end: 20070719
  18. TACROLIMUS [Suspect]
     Dosage: SEE IMAGE  ORAL
     Route: 048
     Dates: start: 20070720, end: 20070720
  19. TACROLIMUS [Suspect]
     Dosage: SEE IMAGE  ORAL
     Route: 048
     Dates: start: 20070721, end: 20070729
  20. TACROLIMUS [Suspect]
     Dosage: SEE IMAGE  ORAL
     Route: 048
     Dates: start: 20070730, end: 20070803
  21. TACROLIMUS [Suspect]
     Dosage: SEE IMAGE  ORAL
     Route: 048
     Dates: start: 20070804, end: 20070808
  22. TACROLIMUS [Suspect]
     Dosage: SEE IMAGE  ORAL
     Route: 048
     Dates: start: 20070809, end: 20070809
  23. TACROLIMUS [Suspect]
     Dosage: SEE IMAGE  ORAL
     Route: 048
     Dates: start: 20070810, end: 20070810
  24. TACROLIMUS [Suspect]
     Dosage: SEE IMAGE  ORAL
     Route: 048
     Dates: start: 20070811, end: 20070824
  25. PROGRAF [Suspect]
     Indication: RENAL AND PANCREAS TRANSPLANT
     Dosage: 1.2 MG/KG, CONTINUOUS, IV DRIP
     Route: 041
     Dates: start: 20070615, end: 20070616
  26. PROGRAF [Suspect]
     Indication: RENAL AND PANCREAS TRANSPLANT
     Dosage: 1.2 MG/KG, CONTINUOUS, IV DRIP
     Route: 041
     Dates: start: 20070617, end: 20070617
  27. PROGRAF [Suspect]
     Indication: RENAL AND PANCREAS TRANSPLANT
     Dosage: 1.2 MG/KG, CONTINUOUS, IV DRIP
     Route: 041
     Dates: start: 20070618, end: 20070619
  28. PROGRAF [Suspect]
     Indication: RENAL AND PANCREAS TRANSPLANT
     Dosage: 1.2 MG/KG, CONTINUOUS, IV DRIP
     Route: 041
     Dates: start: 20070620, end: 20070623
  29. PROGRAF [Suspect]
     Indication: RENAL AND PANCREAS TRANSPLANT
     Dosage: 1.2 MG/KG, CONTINUOUS, IV DRIP
     Route: 041
     Dates: start: 20070624, end: 20070624
  30. PROGRAF [Suspect]
     Indication: RENAL AND PANCREAS TRANSPLANT
     Dosage: 1.2 MG/KG, CONTINUOUS, IV DRIP
     Route: 041
     Dates: start: 20070625, end: 20070626
  31. PROGRAF [Suspect]
     Indication: RENAL AND PANCREAS TRANSPLANT
     Dosage: 1.2 MG/KG, CONTINUOUS, IV DRIP
     Route: 041
     Dates: start: 20070627, end: 20070627
  32. SIMULECT [Suspect]
     Dosage: 20 MG, BID, IV NOS
     Route: 042
     Dates: start: 20070615, end: 20070619
  33. PREDNISOLONE [Concomitant]
  34. CELLCEPT [Concomitant]
  35. HUMULIN R [Concomitant]
  36. ELASPOL (SIVELESTAT SODIUM) INJECTION [Concomitant]
  37. REMINARON (GABEXATE MESILATE) INJECTION [Concomitant]
  38. TANDETRON (ALPROSTADIL ALFADEX) INJECTION [Concomitant]
  39. FUNGUARD (MICAFUNGIN) INJECTION [Concomitant]
  40. HEPARIN [Concomitant]
  41. LANSOPRAZOLE [Concomitant]
  42. HANP (CARPERITIDE) INJECTION [Concomitant]
  43. OMEPRAZOLE [Concomitant]

REACTIONS (1)
  - CYTOMEGALOVIRUS TEST POSITIVE [None]
